FAERS Safety Report 6490155-X (Version None)
Quarter: 2009Q4

REPORT INFORMATION
  Report Type: 
  Country: None (occurrence: None)
  Receive Date: 20091211
  Receipt Date: 20091105
  Transmission Date: 20100525
  Serious: No
  Sender: FDA-Public Use
  Company Number: A0800441A

PATIENT
  Age: 51 Year
  Sex: Female

DRUGS (3)
  1. FLUTICASONE PROPIONATE [Suspect]
     Indication: SINUS HEADACHE
     Dosage: 2SPR PER DAY
     Route: 045
  2. FEXOFENADINE [Concomitant]
  3. QUINAPRIL HCL AND HYDROCHLOROTHIAZIDE [Concomitant]

REACTIONS (2)
  - DRUG INEFFECTIVE [None]
  - PRODUCT QUALITY ISSUE [None]
